FAERS Safety Report 8834243 (Version 6)
Quarter: 2013Q3

REPORT INFORMATION
  Report Type: Spontaneous
  Country: US (occurrence: US)
  Receive Date: 20121010
  Receipt Date: 20130923
  Transmission Date: 20140515
  Serious: Yes (Hospitalization, Disabling, Other)
  Sender: FDA-Public Use
  Company Number: US-009507513-1210USA003257

PATIENT
  Sex: Female
  Weight: 79.82 kg

DRUGS (8)
  1. VITAMIN D (UNSPECIFIED) [Concomitant]
     Indication: OSTEOPOROSIS
     Route: 048
  2. EVISTA [Concomitant]
     Indication: OSTEOPENIA
     Dosage: UNK
  3. EVISTA [Concomitant]
     Indication: OSTEOPOROSIS
  4. CALCIUM (UNSPECIFIED) [Concomitant]
     Indication: OSTEOPOROSIS
  5. FOSAMAX [Suspect]
     Indication: OSTEOPOROSIS
     Dosage: UNK
     Route: 048
     Dates: start: 199608, end: 19991101
  6. FOSAMAX [Suspect]
     Indication: ARTHRITIS
  7. VITAMINS (UNSPECIFIED) [Concomitant]
     Route: 048
  8. VITAMIN B COMPLEX [Concomitant]
     Dosage: UNK
     Route: 048

REACTIONS (63)
  - Femur fracture [Unknown]
  - Osteoporosis [Unknown]
  - Stress fracture [Unknown]
  - Low turnover osteopathy [Unknown]
  - Intramedullary rod insertion [Unknown]
  - Intramedullary rod insertion [Unknown]
  - Transfusion [Unknown]
  - Coronary artery disease [Unknown]
  - Post procedural haemorrhage [Unknown]
  - Oxygen supplementation [Unknown]
  - Fall [Unknown]
  - Femur fracture [Unknown]
  - Impaired healing [Unknown]
  - Anxiety [Not Recovered/Not Resolved]
  - Depression [Not Recovered/Not Resolved]
  - Fall [Unknown]
  - Device failure [Unknown]
  - Ankle fracture [Unknown]
  - Gait disturbance [Unknown]
  - Blood cholesterol increased [Unknown]
  - Transient ischaemic attack [Unknown]
  - Pulmonary granuloma [Unknown]
  - Chronic obstructive pulmonary disease [Unknown]
  - Conduction disorder [Unknown]
  - Ventricular tachycardia [Unknown]
  - Fibula fracture [Unknown]
  - Bone cyst [Unknown]
  - Cardiac ablation [Unknown]
  - Morton^s neuralgia [Unknown]
  - Cataract [Unknown]
  - Arthroscopy [Unknown]
  - Skeletal injury [Unknown]
  - Foot fracture [Unknown]
  - Dental caries [Unknown]
  - Tooth abscess [Unknown]
  - Dental caries [Unknown]
  - Oral discharge [Unknown]
  - Oral neoplasm [Unknown]
  - Oral neoplasm [Unknown]
  - Tonsillar neoplasm [Unknown]
  - Tooth fracture [Unknown]
  - Tooth abscess [Unknown]
  - Dry mouth [Unknown]
  - Bone abscess [Unknown]
  - Device failure [Unknown]
  - Joint injury [Unknown]
  - X-ray limb abnormal [Not Recovered/Not Resolved]
  - Musculoskeletal stiffness [Unknown]
  - Balance disorder [Unknown]
  - Sinus tachycardia [Recovered/Resolved]
  - Kyphosis [Unknown]
  - Gait disturbance [Unknown]
  - Herpes zoster [Unknown]
  - C-reactive protein increased [Unknown]
  - Fracture nonunion [Unknown]
  - Asthenia [Unknown]
  - Myalgia [Unknown]
  - Muscle spasms [Unknown]
  - Pain in extremity [Unknown]
  - Drug ineffective [Unknown]
  - Drug ineffective [Unknown]
  - Abdominal discomfort [Unknown]
  - Nausea [Unknown]
